FAERS Safety Report 9350866 (Version 2)
Quarter: 2013Q2

REPORT INFORMATION
  Report Type: Spontaneous
  Country: AU (occurrence: AU)
  Receive Date: 20130617
  Receipt Date: 20130621
  Transmission Date: 20140414
  Serious: Yes (Death, Hospitalization, Other)
  Sender: FDA-Public Use
  Company Number: AU-ROCHE-1237581

PATIENT
  Sex: Female

DRUGS (3)
  1. LUCENTIS [Suspect]
     Indication: PRODUCT USED FOR UNKNOWN INDICATION
     Route: 050
     Dates: start: 200803
  2. THYROXINE SODIUM [Concomitant]
  3. ASPIRIN [Concomitant]

REACTIONS (3)
  - Haemorrhage intracranial [Fatal]
  - Cerebrovascular accident [Unknown]
  - Eye pain [Unknown]
